FAERS Safety Report 23623546 (Version 2)
Quarter: 2024Q1

REPORT INFORMATION
  Report Type: Spontaneous
  Country: CN (occurrence: CN)
  Receive Date: 20240312
  Receipt Date: 20240314
  Transmission Date: 20240410
  Serious: Yes (Hospitalization)
  Sender: FDA-Public Use
  Company Number: CN-PFIZER INC-PV202400033722

PATIENT
  Age: 38 Year
  Sex: Female
  Weight: 60 kg

DRUGS (1)
  1. LORBRENA [Suspect]
     Active Substance: LORLATINIB
     Indication: Lung neoplasm malignant
     Dosage: 100 MG, 1X/DAY
     Route: 048
     Dates: start: 20240119, end: 20240226

REACTIONS (7)
  - Hallucination [Unknown]
  - Cognitive disorder [Unknown]
  - Amnesia [Unknown]
  - Memory impairment [Unknown]
  - Irritability [Unknown]
  - Face oedema [Unknown]
  - Disorganised speech [Unknown]

NARRATIVE: CASE EVENT DATE: 20240226
